FAERS Safety Report 4428987-1 (Version None)
Quarter: 2004Q3

REPORT INFORMATION
  Report Type: 
  Country: None (occurrence: None)
  Receive Date: 20040818
  Receipt Date: 20040727
  Transmission Date: 20050211
  Serious: Yes (Other)
  Sender: FDA-Public Use
  Company Number: PHEH2004US08144

PATIENT
  Age: 82 Year
  Sex: Female

DRUGS (4)
  1. MIACALCIN [Suspect]
     Indication: OSTEOPOROSIS
     Dosage: 200 IU, QD
     Route: 045
     Dates: start: 20040705, end: 20040713
  2. CALCIUM [Concomitant]
     Dosage: 1000 MG, QD
  3. VITAMIN D [Concomitant]
  4. MULTI-VITAMINS [Concomitant]

REACTIONS (7)
  - CHEST DISCOMFORT [None]
  - DYSPNOEA [None]
  - HEADACHE [None]
  - INFLUENZA LIKE ILLNESS [None]
  - LARYNGITIS [None]
  - RHINORRHOEA [None]
  - TREMOR [None]
